FAERS Safety Report 15616196 (Version 5)
Quarter: 2024Q4

REPORT INFORMATION
  Report Type: Report from Study
  Country: AU (occurrence: AU)
  Receive Date: 20181114
  Receipt Date: 20241120
  Transmission Date: 20250114
  Serious: No
  Sender: ROCHE
  Company Number: AU-ROCHE-2212722

PATIENT
  Age: 67 Year
  Sex: Female

DRUGS (5)
  1. OCREVUS [Suspect]
     Active Substance: OCRELIZUMAB
     Indication: Relapsing-remitting multiple sclerosis
     Dosage: 30/MAR/2023 227 DAYS
     Route: 041
     Dates: start: 20180521
  2. OCREVUS [Suspect]
     Active Substance: OCRELIZUMAB
     Dosage: DOSE HALVED STARTING WITH JUNE 2022 DOSE
     Route: 041
     Dates: start: 20171120
  3. OCREVUS [Suspect]
     Active Substance: OCRELIZUMAB
     Route: 041
     Dates: start: 20181120
  4. OCREVUS [Suspect]
     Active Substance: OCRELIZUMAB
     Route: 041
     Dates: start: 20240328
  5. OCREVUS [Suspect]
     Active Substance: OCRELIZUMAB
     Route: 041
     Dates: start: 20241114

REACTIONS (4)
  - Cystitis [Recovered/Resolved]
  - Off label use [Unknown]
  - Herpes zoster [Not Recovered/Not Resolved]
  - Bronchitis [Not Recovered/Not Resolved]

NARRATIVE: CASE EVENT DATE: 20230330
